FAERS Safety Report 17551479 (Version 1)
Quarter: 2020Q1

REPORT INFORMATION
  Report Type: Spontaneous
  Country: US (occurrence: US)
  Receive Date: 20200317
  Receipt Date: 20200317
  Transmission Date: 20200409
  Serious: No
  Sender: FDA-Public Use
  Company Number: US-EMD SERONO-9150051

PATIENT
  Sex: Female

DRUGS (1)
  1. REBIF [Suspect]
     Active Substance: INTERFERON BETA-1A
     Indication: PRODUCT USED FOR UNKNOWN INDICATION

REACTIONS (8)
  - Fatigue [Unknown]
  - Influenza like illness [Unknown]
  - Injection site reaction [Unknown]
  - Hepatic function abnormal [Unknown]
  - Hypoaesthesia [Unknown]
  - Asthenia [Unknown]
  - Pain [Unknown]
  - Depression [Unknown]
